FAERS Safety Report 5046903-9 (Version None)
Quarter: 2006Q3

REPORT INFORMATION
  Report Type: 
  Country: None (occurrence: None)
  Receive Date: 20060710
  Receipt Date: 20060704
  Transmission Date: 20061208
  Serious: Yes (Life-Threatening)
  Sender: FDA-Public Use
  Company Number: JP-MERCK-0607USA00877

PATIENT
  Age: 56 Year
  Sex: Male

DRUGS (4)
  1. SINGULAIR [Suspect]
     Route: 048
     Dates: end: 20060101
  2. AVELOX [Concomitant]
     Route: 048
  3. AMBROXOL HYDROCHLORIDE [Concomitant]
     Route: 048
  4. LYSOZYME CHLORIDE [Concomitant]
     Route: 048

REACTIONS (1)
  - SHOCK [None]
